FAERS Safety Report 22104720 (Version 1)
Quarter: 2023Q1

REPORT INFORMATION
  Report Type: Spontaneous
  Country: CN (occurrence: CN)
  Receive Date: 20230316
  Receipt Date: 20230316
  Transmission Date: 20230418
  Serious: Yes (Hospitalization)
  Sender: FDA-Public Use
  Company Number: CN-PFIZER INC-PV202300046466

PATIENT
  Sex: Male
  Weight: 65 kg

DRUGS (4)
  1. AVIBACTAM SODIUM\CEFTAZIDIME [Suspect]
     Active Substance: AVIBACTAM SODIUM\CEFTAZIDIME
     Indication: Pneumonia
     Dosage: 2.5 G, BID
     Route: 041
     Dates: start: 20230217, end: 20230304
  2. COLISTIN SULFATE [Suspect]
     Active Substance: COLISTIN SULFATE
     Indication: Pneumonia
     Dosage: 500000 IU, 2X/DAY (50 X 10000U)
     Route: 041
     Dates: start: 20230218, end: 20230303
  3. SODIUM CHLORIDE [Concomitant]
     Active Substance: SODIUM CHLORIDE
     Indication: Vehicle solution use
     Dosage: 100 ML, BID
     Route: 041
     Dates: start: 20230217, end: 20230304
  4. DEXTROSE [Concomitant]
     Active Substance: DEXTROSE
     Indication: Vehicle solution use
     Dosage: 250 ML, BID
     Route: 041
     Dates: start: 20230218, end: 20230303

REACTIONS (1)
  - Dysbiosis [Recovering/Resolving]

NARRATIVE: CASE EVENT DATE: 20230222
